FAERS Safety Report 17167156 (Version 8)
Quarter: 2023Q2

REPORT INFORMATION
  Report Type: Report from Study
  Country: JP (occurrence: JP)
  Receive Date: 20191217
  Receipt Date: 20230620
  Transmission Date: 20230721
  Serious: Yes (Hospitalization)
  Sender: FDA-Public Use
  Company Number: JP-ABBVIE-19K-087-3196746-00

PATIENT
  Age: 72 Year
  Sex: Female
  Weight: 52.2 kg

DRUGS (3)
  1. CARBIDOPA\LEVODOPA [Suspect]
     Active Substance: CARBIDOPA\LEVODOPA
     Indication: Parkinson^s disease
     Dosage: MD : 6 ML?CD : 3.4 ML/HR ? 16 HRS
     Route: 050
     Dates: start: 20191106, end: 20191113
  2. CARBIDOPA\LEVODOPA [Suspect]
     Active Substance: CARBIDOPA\LEVODOPA
     Dosage: MD : 9 ML?CD : 3.4 ML/HR ? 16 HRS
     Route: 050
     Dates: start: 20191113
  3. DROXIDOPA [Concomitant]
     Active Substance: DROXIDOPA
     Indication: Parkinson^s disease
     Route: 048

REACTIONS (9)
  - Forearm fracture [Recovered/Resolved]
  - Musculoskeletal stiffness [Unknown]
  - Fall [Unknown]
  - Malaise [Unknown]
  - Medical device site vesicles [Unknown]
  - Medical device site dryness [Recovering/Resolving]
  - Stoma site discharge [Unknown]
  - Stoma site pain [Unknown]
  - Stoma site erythema [Unknown]

NARRATIVE: CASE EVENT DATE: 20190101
